FAERS Safety Report 6382130-0 (Version None)
Quarter: 2009Q3

REPORT INFORMATION
  Report Type: 
  Country: None (occurrence: None)
  Receive Date: 20090930
  Receipt Date: 20090925
  Transmission Date: 20100115
  Serious: Yes (Death)
  Sender: FDA-Public Use
  Company Number: PHEH2008US11622

PATIENT
  Sex: Male

DRUGS (1)
  1. EXJADE [Suspect]
     Indication: MYELODYSPLASTIC SYNDROME
     Dosage: UNK
     Dates: start: 20080130

REACTIONS (3)
  - BACTERAEMIA [None]
  - RENAL DISORDER [None]
  - SEPSIS [None]
